FAERS Safety Report 6556836-4 (Version None)
Quarter: 2010Q1

REPORT INFORMATION
  Report Type: 
  Country: None (occurrence: None)
  Receive Date: 20100128
  Receipt Date: 20100120
  Transmission Date: 20100710
  Serious: Yes (Other)
  Sender: FDA-Public Use
  Company Number: PHHY2010CH03169

PATIENT
  Sex: Male

DRUGS (1)
  1. SEBIVO [Suspect]

REACTIONS (1)
  - PANCYTOPENIA [None]
